APPROVED DRUG PRODUCT: MIDOL
Active Ingredient: IBUPROFEN
Strength: 200MG
Dosage Form/Route: TABLET;ORAL
Application: A070591 | Product #001
Applicant: BAYER HEALTHCARE LLC
Approved: Sep 2, 1987 | RLD: No | RS: No | Type: DISCN